FAERS Safety Report 20092471 (Version 7)
Quarter: 2023Q2

REPORT INFORMATION
  Report Type: Spontaneous
  Country: US (occurrence: US)
  Receive Date: 20211119
  Receipt Date: 20230626
  Transmission Date: 20230721
  Serious: Yes (Hospitalization, Other)
  Sender: FDA-Public Use
  Company Number: US-PFIZER INC-202101550148

PATIENT
  Age: 89 Year
  Sex: Female
  Weight: 65.77 kg

DRUGS (13)
  1. ESTRING [Suspect]
     Active Substance: ESTRADIOL
     Indication: Bladder disorder
     Dosage: UNK, EVERY 3 MONTHS
     Dates: start: 202101
  2. HYDROCORTISONE [Concomitant]
     Active Substance: HYDROCORTISONE
     Dosage: UNK
  3. MINERALS\VITAMINS [Concomitant]
     Active Substance: MINERALS\VITAMINS
     Indication: Eye disorder
     Dosage: UNK, 1X/DAY
  4. SIMVASTATIN [Concomitant]
     Active Substance: SIMVASTATIN
     Indication: Blood cholesterol abnormal
     Dosage: 10 MG, 1X/DAY
     Route: 048
  5. TRAMADOL [Concomitant]
     Active Substance: TRAMADOL
     Indication: Pain
     Dosage: AS NEEDED EVERY 6 HOURS
  6. TYLENOL [Concomitant]
     Active Substance: ACETAMINOPHEN
     Indication: Pain
     Dosage: 2 EVERY TIME WITH PAIN PILL
  7. MECLIZINE [Concomitant]
     Active Substance: MECLIZINE HYDROCHLORIDE
     Dosage: UNK
  8. GABAPENTIN [Concomitant]
     Active Substance: GABAPENTIN
     Dosage: UNK
  9. METHOCARBAMOL [Concomitant]
     Active Substance: METHOCARBAMOL
     Dosage: UNK
  10. DRAMAMINE [Concomitant]
     Active Substance: DIMENHYDRINATE
     Indication: Dizziness
     Dosage: UNK, 1X/DAY
  11. CABERGOLINE [Concomitant]
     Active Substance: CABERGOLINE
     Indication: Pituitary tumour
     Dosage: UNK, 2X/WEEK
  12. GABEROL [Concomitant]
     Indication: Pituitary tumour
     Dosage: UNK, 2X/WEEK
  13. AMLODIPINE [Concomitant]
     Active Substance: AMLODIPINE BESYLATE
     Dosage: UNK

REACTIONS (15)
  - Spinal fracture [Unknown]
  - Suspected suicide attempt [Unknown]
  - Blindness [Not Recovered/Not Resolved]
  - Dementia [Unknown]
  - Confusional state [Unknown]
  - Muscle spasms [Unknown]
  - Illness [Unknown]
  - Memory impairment [Unknown]
  - Gait disturbance [Unknown]
  - Eye disorder [Unknown]
  - Dizziness [Unknown]
  - Pain [Unknown]
  - Mood altered [Unknown]
  - Off label use [Unknown]
  - Product dispensing error [Unknown]

NARRATIVE: CASE EVENT DATE: 20210101
